FAERS Safety Report 10589204 (Version 2)
Quarter: 2015Q1

REPORT INFORMATION
  Report Type: Other
  Country: IT (occurrence: IT)
  Receive Date: 20141118
  Receipt Date: 20150218
  Transmission Date: 20150720
  Serious: Yes (Life-Threatening)
  Sender: FDA-Public Use
  Company Number: IT-SUN PHARMACEUTICAL INDUSTRIES LTD-2014SUN02598

PATIENT

DRUGS (2)
  1. OXALIPLATINO SUN 5 MG/ML, CONCENTRATO PER SOLUZIONE PER INFUSIONE [Suspect]
     Active Substance: OXALIPLATIN
     Indication: BILIARY NEOPLASM
     Dosage: 100 MG CYCLICAL
     Route: 042
     Dates: start: 20140325, end: 20141008
  2. GEMZAR 1 G [Concomitant]
     Indication: BILIARY NEOPLASM
     Dosage: 1600 MG
     Route: 042
     Dates: start: 20140325, end: 20141007

REACTIONS (6)
  - Drug hypersensitivity [Recovered/Resolved]
  - Electrocardiogram ST segment depression [Recovered/Resolved]
  - Oxygen saturation decreased [None]
  - Arteriospasm coronary [Recovered/Resolved]
  - Kounis syndrome [Recovered/Resolved]
  - Laryngospasm [Recovered/Resolved]

NARRATIVE: CASE EVENT DATE: 20141008
